FAERS Safety Report 20311407 (Version 1)
Quarter: 2022Q1

REPORT INFORMATION
  Report Type: Report from Study
  Country: UY (occurrence: UY)
  Receive Date: 20220107
  Receipt Date: 20220107
  Transmission Date: 20220423
  Serious: Yes (Death, Hospitalization)
  Sender: FDA-Public Use
  Company Number: UY-ABBVIE-22K-168-4225096-00

PATIENT
  Age: 66 Year
  Sex: Male

DRUGS (1)
  1. RINVOQ [Suspect]
     Active Substance: UPADACITINIB
     Indication: Rheumatoid arthritis
     Route: 048
     Dates: start: 20200429

REACTIONS (4)
  - Fall [Fatal]
  - Bronchospasm [Fatal]
  - Rib fracture [Fatal]
  - Upper limb fracture [Fatal]

NARRATIVE: CASE EVENT DATE: 20211201
